FAERS Safety Report 20145555 (Version 1)
Quarter: 2021Q4

REPORT INFORMATION
  Report Type: Spontaneous
  Country: CA (occurrence: CA)
  Receive Date: 20211203
  Receipt Date: 20211203
  Transmission Date: 20220303
  Serious: Yes (Death)
  Sender: FDA-Public Use
  Company Number: CA-TEVA-2021-CA-1983102

PATIENT
  Age: 30 Year
  Sex: Male

DRUGS (5)
  1. AMOXICILLIN [Interacting]
     Active Substance: AMOXICILLIN
     Indication: Dental care
     Route: 065
  2. PREDNISOLONE [Interacting]
     Active Substance: PREDNISOLONE
     Indication: Hypersensitivity
     Route: 065
  3. BENADRYL [Interacting]
     Active Substance: DIPHENHYDRAMINE HYDROCHLORIDE
     Indication: Hypersensitivity
     Route: 065
  4. EPINEPHRINE [Interacting]
     Active Substance: EPINEPHRINE
     Indication: Hypersensitivity
     Route: 065
  5. CETIRIZINE HYDROCHLORIDE [Interacting]
     Active Substance: CETIRIZINE HYDROCHLORIDE
     Indication: Hypersensitivity
     Route: 065

REACTIONS (17)
  - Abdominal pain [Fatal]
  - Agitation [Fatal]
  - Anaphylactic reaction [Fatal]
  - Blindness cortical [Fatal]
  - Blood pressure increased [Fatal]
  - Cardio-respiratory arrest [Fatal]
  - Cyanosis [Fatal]
  - Delirium [Fatal]
  - Drug-disease interaction [Fatal]
  - Dyspnoea [Fatal]
  - Hypoxia [Fatal]
  - Hypoxic-ischaemic encephalopathy [Fatal]
  - Pulmonary oedema [Fatal]
  - Quadriplegia [Fatal]
  - Swelling face [Fatal]
  - Tachycardia [Fatal]
  - Acute kidney injury [Fatal]
